FAERS Safety Report 9690158 (Version 6)
Quarter: 2014Q2

REPORT INFORMATION
  Report Type: Report from Study
  Country: CA (occurrence: CA)
  Receive Date: 20131115
  Receipt Date: 20140611
  Transmission Date: 20141212
  Serious: Yes (Death, Hospitalization)
  Sender: FDA-Public Use
  Company Number: PHHY2013CA080869

PATIENT
  Age: 67 Year
  Sex: Female

DRUGS (4)
  1. SANDOSTATIN LAR [Suspect]
     Indication: OVARIAN CANCER
     Dosage: 20 MG, EVERY 4 WEEKS
     Route: 030
     Dates: start: 20130625, end: 20130625
  2. SANDOSTATIN LAR [Suspect]
     Indication: OFF LABEL USE
     Dosage: 20 MG, EVERY 4 WEEKS
     Route: 030
     Dates: start: 20140218, end: 20140509
  3. SANDOSTATIN [Suspect]
     Indication: OVARIAN CANCER
     Dosage: UNK UKN, TID
     Route: 058
  4. SANDOSTATIN [Suspect]
     Indication: OFF LABEL USE

REACTIONS (7)
  - Ovarian cancer [Fatal]
  - Back pain [Unknown]
  - Bile duct stone [Unknown]
  - Hemiplegia [Unknown]
  - Transient ischaemic attack [Unknown]
  - White blood cell count decreased [Unknown]
  - Injection site pain [Unknown]
